FAERS Safety Report 10190209 (Version 1)
Quarter: 2014Q2

REPORT INFORMATION
  Report Type: Spontaneous
  Country: CA (occurrence: CA)
  Receive Date: 20140522
  Receipt Date: 20140522
  Transmission Date: 20141212
  Serious: Yes (Hospitalization)
  Sender: FDA-Public Use
  Company Number: CA-ELI_LILLY_AND_COMPANY-CA201405004314

PATIENT
  Age: 71 Year
  Sex: Male

DRUGS (6)
  1. CIALIS [Suspect]
     Indication: ERECTILE DYSFUNCTION
     Dosage: 5 MG, QD
     Route: 048
     Dates: start: 201402
  2. ELTROXIN [Concomitant]
  3. HYDROCHLOROTHIAZIDE [Concomitant]
  4. NORVASC [Concomitant]
  5. COVERSYL                           /00790702/ [Concomitant]
     Dosage: UNK
  6. FLOMAX                             /00889901/ [Concomitant]
     Dosage: UNK
     Dates: start: 20140508

REACTIONS (4)
  - Urethral stenosis [Unknown]
  - Urethral haemorrhage [Unknown]
  - Back pain [Recovered/Resolved]
  - Influenza like illness [Recovered/Resolved]
